FAERS Safety Report 5754519-1 (Version None)
Quarter: 2008Q2

REPORT INFORMATION
  Report Type: 
  Country: None (occurrence: None)
  Receive Date: 20080530
  Receipt Date: 20080319
  Transmission Date: 20081010
  Serious: No
  Sender: FDA-Public Use
  Company Number: US-BOEHRINGER INGELHEIM GMBH, GERMANY-2008-BP-04312BP

PATIENT
  Age: 61 Year
  Sex: Female

DRUGS (2)
  1. SPIRIVA [Suspect]
     Indication: CHRONIC OBSTRUCTIVE PULMONARY DISEASE
     Route: 055
     Dates: start: 20071106, end: 20080320
  2. KLONOPIN [Concomitant]
     Indication: SOMNOLENCE

REACTIONS (11)
  - ALANINE AMINOTRANSFERASE INCREASED [None]
  - ANTIBODY TEST ABNORMAL [None]
  - ASPARTATE AMINOTRANSFERASE INCREASED [None]
  - BLOOD CHOLESTEROL [None]
  - BONE PAIN [None]
  - DYSPHONIA [None]
  - EAR DISORDER [None]
  - MALAISE [None]
  - MYALGIA [None]
  - PYREXIA [None]
  - THROAT IRRITATION [None]
